FAERS Safety Report 9001835 (Version 2)
Quarter: 2013Q1

REPORT INFORMATION
  Report Type: Spontaneous
  Country: GB (occurrence: GB)
  Receive Date: 20130107
  Receipt Date: 20130115
  Transmission Date: 20140127
  Serious: No
  Sender: FDA-Public Use
  Company Number: GB-ROCHE-1176311

PATIENT
  Age: 50 Year
  Sex: Female

DRUGS (8)
  1. MABTHERA [Suspect]
     Indication: RHEUMATOID ARTHRITIS
     Route: 042
     Dates: start: 20110506
  2. IBUPROFEN [Concomitant]
     Indication: PAIN
     Route: 048
  3. BECLOMETASONE [Concomitant]
  4. PARACETAMOL [Concomitant]
     Indication: PAIN
     Route: 048
  5. CO-CODAMOL [Concomitant]
     Indication: PAIN
     Route: 048
  6. SALBUTAMOL [Concomitant]
  7. DIAZEPAM [Concomitant]
     Indication: ANXIETY
     Route: 048
  8. PREDNISOLONE [Concomitant]
     Indication: CHRONIC OBSTRUCTIVE PULMONARY DISEASE

REACTIONS (3)
  - Weight decreased [Unknown]
  - Blood cholesterol increased [Not Recovered/Not Resolved]
  - Cholelithiasis [Unknown]
